FAERS Safety Report 6404430-8 (Version None)
Quarter: 2009Q4

REPORT INFORMATION
  Report Type: 
  Country: None (occurrence: None)
  Receive Date: 20091016
  Receipt Date: 20090713
  Transmission Date: 20100525
  Serious: No
  Sender: FDA-Public Use
  Company Number: US-ALEXION-A200900566

PATIENT
  Sex: Female

DRUGS (12)
  1. SOLIRIS [Suspect]
     Indication: PAROXYSMAL NOCTURNAL HAEMOGLOBINURIA
     Dosage: 900 MG, Q12D
     Route: 042
     Dates: start: 20070511
  2. SOLIRIS [Suspect]
     Dosage: 900 MG, QW
     Route: 042
     Dates: start: 20080812, end: 20080910
  3. SOLIRIS [Suspect]
     Dosage: 1200 MG, Q2W
     Route: 042
     Dates: start: 20080924
  4. MORPHINE [Concomitant]
     Dosage: UNK
     Route: 048
  5. DILAUDID [Concomitant]
     Dosage: UNK
     Route: 048
  6. FOLIC ACID [Concomitant]
     Dosage: UNK
     Route: 048
  7. EFFEXOR [Concomitant]
     Dosage: UNK
     Route: 048
  8. VITAMIN A [Concomitant]
     Dosage: UNK
     Route: 048
  9. VITAMIN B12                        /00056201/ [Concomitant]
     Dosage: UNK
     Route: 048
  10. POTASSIUM CHLORIDE [Concomitant]
     Dosage: UNK
     Route: 048
  11. MULTIVITAMIN                       /00831701/ [Concomitant]
     Dosage: UNK
     Route: 048
  12. POTASSIUM PHOSPHATES [Concomitant]
     Dosage: UNK
     Route: 048

REACTIONS (1)
  - HAEMOGLOBIN DECREASED [None]
